FAERS Safety Report 14403643 (Version 1)
Quarter: 2020Q3

REPORT INFORMATION
  Report Type: Spontaneous
  Country: DE (occurrence: DE)
  Receive Date: 20180117
  Receipt Date: 20180117
  Transmission Date: 20201105
  Serious: Yes (Hospitalization)
  Sender: FDA-Public Use
  Company Number: DE-ROCHE-2055831

PATIENT
  Age: 53 Year
  Sex: Female

DRUGS (1)
  1. IBANDRONIC ACID. [Suspect]
     Active Substance: IBANDRONIC ACID
     Indication: BREAST CANCER
     Route: 048

REACTIONS (4)
  - Pain [Unknown]
  - Osteonecrosis of jaw [Unknown]
  - Erythema [Unknown]
  - Infection [Unknown]
